FAERS Safety Report 10169226 (Version 1)
Quarter: 2014Q2

REPORT INFORMATION
  Report Type: Spontaneous
  Country: GB (occurrence: GB)
  Receive Date: 20140513
  Receipt Date: 20140513
  Transmission Date: 20141212
  Serious: Yes (Death)
  Sender: FDA-Public Use
  Company Number: GB-TEVA-481243ISR

PATIENT
  Age: 12 Year
  Sex: Female

DRUGS (4)
  1. DIHYDROCODEINE [Suspect]
     Route: 065
  2. CITALOPRAM [Suspect]
     Route: 065
  3. AMITRIPTYLINE [Suspect]
     Route: 065
  4. PARACETAMOL [Suspect]
     Route: 065

REACTIONS (1)
  - Toxicity to various agents [Fatal]
